FAERS Safety Report 21449294 (Version 1)
Quarter: 2022Q4

REPORT INFORMATION
  Report Type: Report from Study
  Country: CA (occurrence: CA)
  Receive Date: 20221013
  Receipt Date: 20221013
  Transmission Date: 20230113
  Serious: Yes (Other)
  Sender: FDA-Public Use
  Company Number: CA-TAKEDA-2022TUS071175

PATIENT
  Age: 60 Year
  Sex: Female

DRUGS (6)
  1. VEDOLIZUMAB [Suspect]
     Active Substance: VEDOLIZUMAB
     Indication: Colitis ulcerative
     Dosage: 300 MILLIGRAM
     Route: 042
     Dates: start: 20190405
  2. VEDOLIZUMAB [Suspect]
     Active Substance: VEDOLIZUMAB
     Dosage: 300 MILLIGRAM, Q4WEEKS
     Route: 042
     Dates: start: 20201118
  3. Salofalk [Concomitant]
     Dosage: 800 MILLIGRAM
  4. ASACOL [Concomitant]
     Active Substance: MESALAMINE
     Dosage: UNK
  5. FOLIC ACID [Concomitant]
     Active Substance: FOLIC ACID
     Dosage: 5 MILLIGRAM
  6. Cortiment [Concomitant]
     Dosage: 800 MILLIGRAM

REACTIONS (2)
  - Neoplasm malignant [Unknown]
  - Off label use [Unknown]

NARRATIVE: CASE EVENT DATE: 20201118
